FAERS Safety Report 6377397-9 (Version None)
Quarter: 2009Q3

REPORT INFORMATION
  Report Type: 
  Country: None (occurrence: None)
  Receive Date: 20090925
  Receipt Date: 20090916
  Transmission Date: 20100115
  Serious: Yes (Hospitalization, Disabling)
  Sender: FDA-Public Use
  Company Number: CA-JNJFOC-20090905190

PATIENT
  Sex: Female
  Weight: 60 kg

DRUGS (1)
  1. REMICADE [Suspect]
     Indication: CROHN'S DISEASE
     Dosage: 3 MG/KG
     Route: 042

REACTIONS (3)
  - ARTERIAL OCCLUSIVE DISEASE [None]
  - DYSPHONIA [None]
  - HEADACHE [None]
